FAERS Safety Report 15368844 (Version 1)
Quarter: 2018Q3

REPORT INFORMATION
  Report Type: Report from Study
  Country: MX (occurrence: MX)
  Receive Date: 20180911
  Receipt Date: 20180911
  Transmission Date: 20181010
  Serious: Yes (Other)
  Sender: FDA-Public Use
  Company Number: MX-BRISTOL-MYERS SQUIBB COMPANY-BMS-2018-079126

PATIENT
  Age: 57 Year
  Sex: Female

DRUGS (1)
  1. DASATINIB. [Suspect]
     Active Substance: DASATINIB
     Indication: CHRONIC MYELOID LEUKAEMIA
     Dosage: 100 MG, DAILY
     Route: 048
     Dates: start: 20180721, end: 20180820

REACTIONS (11)
  - Eye oedema [Unknown]
  - Malaise [Unknown]
  - Discomfort [Unknown]
  - Diarrhoea [Unknown]
  - Vomiting [Unknown]
  - Pleural effusion [Unknown]
  - Rash generalised [Unknown]
  - Headache [Unknown]
  - Asthenia [Unknown]
  - Erythema [Unknown]
  - Face oedema [Unknown]

NARRATIVE: CASE EVENT DATE: 20180812
